FAERS Safety Report 6287015-6 (Version None)
Quarter: 2009Q3

REPORT INFORMATION
  Report Type: 
  Country: None (occurrence: None)
  Receive Date: 20090728
  Receipt Date: 20090728
  Transmission Date: 20100115
  Serious: Yes (Other)
  Sender: FDA-Public Use
  Company Number: US-ROXANE LABORATORIES, INC.-2009-RO-00755RO

PATIENT
  Age: 18 Year
  Sex: Female

DRUGS (1)
  1. PREDNISONE [Suspect]
     Indication: ECZEMA

REACTIONS (1)
  - NEPHRECTOMY [None]
